FAERS Safety Report 18755006 (Version 2)
Quarter: 2021Q2

REPORT INFORMATION
  Report Type: Spontaneous
  Country: PL (occurrence: PL)
  Receive Date: 20210119
  Receipt Date: 20210425
  Transmission Date: 20210717
  Serious: Yes (Death, Hospitalization)
  Sender: FDA-Public Use
  Company Number: PL-ABBVIE-21K-129-3733645-00

PATIENT
  Age: 71 Year
  Sex: Male
  Weight: 60 kg

DRUGS (1)
  1. VENCLYXTO [Suspect]
     Active Substance: VENETOCLAX
     Indication: CHRONIC LYMPHOCYTIC LEUKAEMIA
     Route: 048
     Dates: start: 20200110, end: 20200316

REACTIONS (16)
  - Illogical thinking [Unknown]
  - Lymphadenopathy [Unknown]
  - Somnolence [Unknown]
  - Systemic candida [Fatal]
  - Pneumonia [Fatal]
  - General physical condition abnormal [Fatal]
  - Lymphatic disorder [Unknown]
  - Osteolysis [Unknown]
  - Anaemia [Unknown]
  - Candida sepsis [Unknown]
  - Thrombocytopenia [Unknown]
  - Neoplasm [Unknown]
  - Lymphocyte count increased [Unknown]
  - Neutropenia [Unknown]
  - Chronic lymphocytic leukaemia [Fatal]
  - Hypercalcaemia [Recovered/Resolved]

NARRATIVE: CASE EVENT DATE: 202003
